FAERS Safety Report 5803308-8 (Version None)
Quarter: 2008Q3

REPORT INFORMATION
  Report Type: 
  Country: None (occurrence: None)
  Receive Date: 20080708
  Receipt Date: 20080627
  Transmission Date: 20090109
  Serious: Yes (Life-Threatening)
  Sender: FDA-Public Use
  Company Number: B0527673A

PATIENT
  Age: 40 Year
  Sex: Female

DRUGS (4)
  1. AUGMENTIN '125' [Suspect]
     Indication: DRUG USE FOR UNKNOWN INDICATION
     Dosage: 2G SINGLE DOSE
     Route: 042
     Dates: start: 20080317, end: 20080317
  2. PROPOFOL [Suspect]
     Route: 042
     Dates: start: 20080317, end: 20080317
  3. CELOCURINE [Suspect]
     Route: 042
     Dates: start: 20080317, end: 20080317
  4. SUFENTANIL CITRATE [Suspect]
     Route: 042
     Dates: start: 20080317, end: 20080317

REACTIONS (3)
  - BLOOD PRESSURE DECREASED [None]
  - OXYGEN SATURATION DECREASED [None]
  - SHOCK [None]
